FAERS Safety Report 8886288 (Version 1)
Quarter: 2012Q4

REPORT INFORMATION
  Report Type: 
  Country: FR (occurrence: FR)
  Receive Date: 20121105
  Receipt Date: 20121105
  Transmission Date: 20130627
  Serious: Yes (Life-Threatening, Other)
  Sender: FDA-Public Use
  Company Number: FR-ASTRAZENECA-2012SE82980

PATIENT
  Age: 697 Month
  Sex: Male

DRUGS (20)
  1. INEXIUM [Suspect]
     Indication: ABDOMINAL PAIN UPPER
     Route: 048
     Dates: start: 20120927, end: 20121003
  2. IMUREL [Suspect]
     Indication: CROHN^S DISEASE
     Route: 048
  3. SEROPRAM [Suspect]
     Route: 048
  4. HUMIRA [Suspect]
     Route: 048
  5. AMLOR [Concomitant]
  6. ARESTAL [Concomitant]
  7. AVLOCARDYL [Concomitant]
  8. DAFALGAN [Concomitant]
     Dosage: UNKNOWN DOSE AS REQUIRED
  9. HYDROCORTISONE [Concomitant]
  10. HYPERIUM [Concomitant]
  11. IMOVANE [Concomitant]
  12. KARDEGIC [Concomitant]
  13. LEXOMIL [Concomitant]
  14. POTASSIUM RICHARD [Concomitant]
  15. POTASSIUM RICHARD [Concomitant]
  16. SMECTA [Concomitant]
  17. TIORFAN [Concomitant]
  18. LOVENOX [Concomitant]
  19. PIPERACILLINE TAZOBACTAM [Concomitant]
  20. LIPID LOWERING DRUG [Concomitant]

REACTIONS (1)
  - Bicytopenia [Unknown]
